FAERS Safety Report 25660007 (Version 1)
Quarter: 2025Q3

REPORT INFORMATION
  Report Type: Spontaneous
  Country: US (occurrence: None)
  Receive Date: 20250807
  Receipt Date: 20250807
  Transmission Date: 20251021
  Serious: Yes (Other)
  Sender: FDA-CTU
  Company Number: None

PATIENT
  Age: 52 Year
  Sex: Female
  Weight: 96.75 kg

DRUGS (13)
  1. LEQVIO [Suspect]
     Active Substance: INCLISIRAN SODIUM
     Route: 058
     Dates: start: 20221230, end: 20250723
  2. BUPROPION [Concomitant]
     Active Substance: BUPROPION
  3. CYCLOBENZAPRINE [Concomitant]
     Active Substance: CYCLOBENZAPRINE
  4. DICYCLOMINE [Concomitant]
     Active Substance: DICYCLOMINE HYDROCHLORIDE
  5. EFLORNITHINE [Concomitant]
     Active Substance: EFLORNITHINE
  6. ERGOCALCIFEROL [Concomitant]
     Active Substance: ERGOCALCIFEROL
  7. MELOXICAM [Concomitant]
     Active Substance: MELOXICAM
  8. METHYLPHENIDATE [Concomitant]
     Active Substance: METHYLPHENIDATE
  9. MIEBO [Concomitant]
     Active Substance: PERFLUOROHEXYLOCTANE
  10. RETIN-A [Concomitant]
     Active Substance: TRETINOIN
  11. VITAMINS [Concomitant]
     Active Substance: VITAMINS
  12. SYNTHROID [Concomitant]
     Active Substance: LEVOTHYROXINE SODIUM
  13. XIIDRA [Concomitant]
     Active Substance: LIFITEGRAST

REACTIONS (6)
  - Injection site rash [None]
  - Injection site warmth [None]
  - Injection site pruritus [None]
  - Injection site vesicles [None]
  - Injection site dryness [None]
  - Injection site exfoliation [None]

NARRATIVE: CASE EVENT DATE: 20250723
